FAERS Safety Report 13769900 (Version 2)
Quarter: 2017Q3

REPORT INFORMATION
  Report Type: Spontaneous
  Country: US (occurrence: US)
  Receive Date: 20170719
  Receipt Date: 20170724
  Transmission Date: 20171127
  Serious: No
  Sender: FDA-Public Use
  Company Number: US-TEVA-789167ACC

PATIENT
  Age: 32 Year
  Sex: Female
  Weight: 83.54 kg

DRUGS (1)
  1. TAKE ACTION [Suspect]
     Active Substance: LEVONORGESTREL
     Indication: POST COITAL CONTRACEPTION
     Dates: start: 20170620, end: 20170620

REACTIONS (5)
  - Menstruation delayed [Not Recovered/Not Resolved]
  - Headache [Not Recovered/Not Resolved]
  - Vaginal haemorrhage [Recovered/Resolved]
  - Intentional product misuse [Unknown]
  - Nausea [Not Recovered/Not Resolved]

NARRATIVE: CASE EVENT DATE: 20170620
